FAERS Safety Report 13237554 (Version 1)
Quarter: 2017Q1

REPORT INFORMATION
  Report Type: Spontaneous
  Country: BR (occurrence: BR)
  Receive Date: 20170215
  Receipt Date: 20170215
  Transmission Date: 20170428
  Serious: Yes (Hospitalization, Other)
  Sender: FDA-Public Use
  Company Number: BR-009507513-1702BRA005059

PATIENT
  Age: 59 Year
  Sex: Female

DRUGS (4)
  1. JANUMET [Suspect]
     Active Substance: METFORMIN HYDROCHLORIDE\SITAGLIPTIN PHOSPHATE
     Indication: DIABETES MELLITUS
     Dosage: ONE TABLET IN THE MORNING
     Route: 048
     Dates: start: 2007
  2. PURAN [Concomitant]
     Active Substance: LEVOTHYROXINE SODIUM
     Indication: THYROID DISORDER
     Dosage: ONE TABLET DAILY (AT FASTING)
     Route: 048
     Dates: start: 2007
  3. JANUMET [Suspect]
     Active Substance: METFORMIN HYDROCHLORIDE\SITAGLIPTIN PHOSPHATE
     Dosage: ONE TABLET IN THE NIGHT
     Route: 048
     Dates: start: 2007
  4. ATACAND [Concomitant]
     Active Substance: CANDESARTAN CILEXETIL
     Indication: HYPERTENSION
     Dosage: ONE TABLET DAILY
     Route: 048
     Dates: start: 2007

REACTIONS (11)
  - Arterial catheterisation [Recovered/Resolved]
  - Finger deformity [Not Recovered/Not Resolved]
  - Hypoaesthesia [Not Recovered/Not Resolved]
  - Myocardial infarction [Recovered/Resolved]
  - Arterial catheterisation [Recovered/Resolved]
  - Myocardial infarction [Recovered/Resolved]
  - Neuropathy peripheral [Not Recovered/Not Resolved]
  - Blood cholesterol increased [Not Recovered/Not Resolved]
  - Pain in extremity [Not Recovered/Not Resolved]
  - Arterial occlusive disease [Recovered/Resolved]
  - Enzyme abnormality [Unknown]

NARRATIVE: CASE EVENT DATE: 2009
